FAERS Safety Report 7411026-8 (Version None)
Quarter: 2011Q2

REPORT INFORMATION
  Report Type: 
  Country: None (occurrence: None)
  Receive Date: 20110413
  Receipt Date: 20110331
  Transmission Date: 20111010
  Serious: Yes (Hospitalization, Other)
  Sender: FDA-Public Use
  Company Number: US-ELI_LILLY_AND_COMPANY-US201104001374

PATIENT
  Sex: Female

DRUGS (9)
  1. FOLIC ACID [Concomitant]
     Dosage: UNK, UNKNOWN
  2. MS CONTIN [Concomitant]
     Dosage: UNK, UNKNOWN
  3. OYSCO [Concomitant]
     Dosage: UNK, UNKNOWN
  4. FORTEO [Suspect]
     Indication: OSTEOPOROSIS
     Dosage: 20 UG, QD
     Dates: start: 20110201
  5. INSULIN [Concomitant]
     Dosage: UNK, UNKNOWN
  6. PREDNISONE [Concomitant]
     Dosage: UNK, UNKNOWN
     Route: 065
  7. CARDIZEM [Concomitant]
     Dosage: UNK, UNKNOWN
  8. PLAVIX [Concomitant]
     Dosage: UNK, UNKNOWN
  9. JANUVIA [Concomitant]

REACTIONS (9)
  - FAECES DISCOLOURED [None]
  - URINARY RETENTION [None]
  - ABNORMAL BEHAVIOUR [None]
  - DUODENAL ULCER [None]
  - COLD SWEAT [None]
  - HAEMOGLOBIN DECREASED [None]
  - HAEMORRHAGE [None]
  - COMA [None]
  - BLOOD CALCIUM INCREASED [None]
